FAERS Safety Report 6235562-5 (Version None)
Quarter: 2009Q2

REPORT INFORMATION
  Report Type: 
  Country: None (occurrence: None)
  Receive Date: 20090618
  Receipt Date: 20090216
  Transmission Date: 20091009
  Serious: No
  Sender: FDA-Public Use
  Company Number: US-ASTRAZENECA-2009UW04479

PATIENT
  Sex: Female

DRUGS (1)
  1. RHINOCORT [Suspect]
     Indication: SINUSITIS
     Dosage: 128 MCG, 2 SPRAYS PER NOSTRIL TWICE DAILY
     Route: 045

REACTIONS (1)
  - DEPRESSED MOOD [None]
